FAERS Safety Report 20351018 (Version 1)
Quarter: 2022Q1

REPORT INFORMATION
  Report Type: Spontaneous
  Country: US (occurrence: US)
  Receive Date: 20220119
  Receipt Date: 20220119
  Transmission Date: 20220423
  Serious: No
  Sender: FDA-Public Use
  Company Number: US-MYLANLABS-2021M1093617

PATIENT
  Age: 80 Year
  Sex: Female
  Weight: 77.11 kg

DRUGS (3)
  1. ESTRADIOL [Suspect]
     Active Substance: ESTRADIOL
     Indication: Vulvovaginal pruritus
     Dosage: 0.01 PERCENT, QD
     Route: 067
     Dates: start: 20211208, end: 20211213
  2. ESTRADIOL [Suspect]
     Active Substance: ESTRADIOL
     Indication: Genital rash
  3. TYLENOL [Concomitant]
     Active Substance: ACETAMINOPHEN
     Dosage: UNK

REACTIONS (4)
  - Application site vesicles [Unknown]
  - Application site erythema [Unknown]
  - Off label use [Unknown]
  - Application site pruritus [Unknown]

NARRATIVE: CASE EVENT DATE: 20211208
